FAERS Safety Report 8238269-8 (Version None)
Quarter: 2012Q1

REPORT INFORMATION
  Report Type: 
  Country: None (occurrence: None)
  Receive Date: 20120327
  Receipt Date: 20120314
  Transmission Date: 20120608
  Serious: Yes (Other)
  Sender: FDA-Public Use
  Company Number: US-ROCHE-1052368

PATIENT
  Sex: Female

DRUGS (8)
  1. FOSAMAX [Suspect]
     Indication: OSTEOPENIA
  2. RECLAST [Suspect]
     Indication: OSTEOPOROSIS
     Dates: start: 20030101, end: 20100101
  3. ZOMETA [Suspect]
     Indication: OSTEOPENIA
  4. BONIVA [Suspect]
     Indication: OSTEOPENIA
  5. ZOMETA [Suspect]
     Indication: OSTEOPOROSIS
     Dates: start: 20030101, end: 20100101
  6. BONIVA [Suspect]
     Indication: OSTEOPOROSIS
     Dates: start: 20030101, end: 20100101
  7. RECLAST [Suspect]
     Indication: OSTEOPENIA
  8. FOSAMAX [Suspect]
     Indication: OSTEOPOROSIS
     Dates: start: 20030101, end: 20100101

REACTIONS (2)
  - EMOTIONAL DISTRESS [None]
  - FEMUR FRACTURE [None]
